FAERS Safety Report 18154107 (Version 1)
Quarter: 2020Q3

REPORT INFORMATION
  Report Type: Spontaneous
  Country: AR (occurrence: AR)
  Receive Date: 20200816
  Receipt Date: 20200816
  Transmission Date: 20201103
  Serious: Yes (Other)
  Sender: FDA-Public Use
  Company Number: AR-PFIZER INC-2020312817

PATIENT
  Age: 66 Year
  Sex: Female

DRUGS (1)
  1. XELJANZ [Suspect]
     Active Substance: TOFACITINIB CITRATE
     Indication: RHEUMATOID ARTHRITIS
     Dosage: 5 MG, 2X/DAY
     Dates: start: 20190506

REACTIONS (5)
  - Thrombosis [Unknown]
  - Gait disturbance [Unknown]
  - Infarction [Unknown]
  - Sciatica [Unknown]
  - Malaise [Unknown]

NARRATIVE: CASE EVENT DATE: 2019
